FAERS Safety Report 10376261 (Version 1)
Quarter: 2014Q3

REPORT INFORMATION
  Report Type: Spontaneous
  Country: US (occurrence: US)
  Receive Date: 20140811
  Receipt Date: 20140811
  Transmission Date: 20150326
  Serious: No
  Sender: FDA-Public Use
  Company Number: US-ASTRAZENECA-2013SE79233

PATIENT
  Age: 66 Year
  Sex: Female
  Weight: 43.1 kg

DRUGS (5)
  1. LASIX [Concomitant]
     Active Substance: FUROSEMIDE
     Indication: HYPERTENSION
  2. ARIMIDEX [Suspect]
     Active Substance: ANASTROZOLE
     Indication: OVARIAN CANCER
     Route: 048
     Dates: start: 201310
  3. B VITAMINS [Concomitant]
     Indication: NEUROPATHY PERIPHERAL
  4. CALCIUM [Concomitant]
     Active Substance: CALCIUM
     Dosage: DAILY
  5. LASIX [Concomitant]
     Active Substance: FUROSEMIDE
     Indication: LOCAL SWELLING

REACTIONS (25)
  - Breast pain [Unknown]
  - Hot flush [Unknown]
  - Intentional product misuse [Unknown]
  - Abdominal discomfort [Unknown]
  - Abdominal pain [Unknown]
  - Hypertension [Unknown]
  - Insomnia [Unknown]
  - Headache [Unknown]
  - Dizziness [Unknown]
  - Malaise [Unknown]
  - Fatigue [Unknown]
  - Rhinitis [Unknown]
  - Decreased activity [Unknown]
  - Nausea [Unknown]
  - Dry mouth [Unknown]
  - Influenza like illness [Unknown]
  - Thirst [Unknown]
  - Neuropathy peripheral [Unknown]
  - Eructation [Unknown]
  - Mood altered [Unknown]
  - Back pain [Unknown]
  - Neck pain [Unknown]
  - Diarrhoea [None]
  - Peripheral swelling [Unknown]
  - Alopecia [Unknown]
